FAERS Safety Report 9185853 (Version 1)
Quarter: 2012Q4

REPORT INFORMATION
  Report Type: 
  Country: IN (occurrence: IN)
  Receive Date: 20121101
  Receipt Date: 20121101
  Transmission Date: 20130627
  Serious: Yes (Other)
  Sender: FDA-Public Use
  Company Number: IN-MYLANLABS-2012S1021986

PATIENT
  Age: 6 Year
  Sex: Male

DRUGS (8)
  1. PREDNISOLONE [Suspect]
     Indication: NON-HODGKIN^S LYMPHOMA
     Dosage: cumulative dose: 728mg; part of MCP-841 protocol; Induction-I
     Route: 065
  2. ASPARAGINASE [Suspect]
     Indication: NON-HODGKIN^S LYMPHOMA
     Dosage: cumulative dose: 40g; part of MCP-841 protocol; Induction-I
     Route: 065
  3. DAUNORUBICIN [Suspect]
     Indication: NON-HODGKIN^S LYMPHOMA
     Dosage: cumulative dose: 40mg; part of MCP-841 protocol; Induction-I
     Route: 065
  4. VINCRISTINE [Suspect]
     Indication: NON-HODGKIN^S LYMPHOMA
     Dosage: cumulative dose: 5mg; part of MCP-841 protocol; Induction-I
     Route: 065
  5. METHOTREXATE [Suspect]
     Indication: NON-HODGKIN^S LYMPHOMA
     Dosage: cumulative dose: 36mg
     Route: 037
  6. CYCLOPHOSPHAMIDE [Suspect]
     Indication: NON-HODGKIN^S LYMPHOMA
     Dosage: total dose: 500mg; part of ALL-BFM 95 protocol; Induction-II
     Route: 065
  7. MERCAPTOPURINE [Suspect]
     Indication: NON-HODGKIN^S LYMPHOMA
     Dosage: total dose: 840mg; part of ALL-BFM 95 protocol; Induction-II
     Route: 065
  8. CYTARABINE [Suspect]
     Indication: NON-HODGKIN^S LYMPHOMA
     Dosage: total dose: 600mg; part of ALL-BFM 95 protocol; Induction-II
     Route: 065

REACTIONS (3)
  - Neutropenic colitis [Recovering/Resolving]
  - Leukopenia [Recovered/Resolved]
  - Thrombocytopenia [Recovered/Resolved]
